FAERS Safety Report 4835558-1 (Version None)
Quarter: 2005Q4

REPORT INFORMATION
  Report Type: 
  Country: None (occurrence: None)
  Receive Date: 20051123
  Receipt Date: 20051115
  Transmission Date: 20060501
  Serious: Yes (Other)
  Sender: FDA-Public Use
  Company Number: ES-BOEHRINGER INGELHEIM PHARMACEUTICALS, INC.-2005-DE-04984GD

PATIENT
  Age: 38 Year
  Sex: Male

DRUGS (4)
  1. CLONIDINE [Suspect]
     Indication: HYPERTENSION
  2. CLONIDINE [Suspect]
     Indication: CONVULSION
     Route: 048
  3. MORPHINE [Suspect]
     Indication: CONVULSION
     Dosage: 3 MG/H
     Route: 042
  4. LABETALOL [Concomitant]
     Dosage: 20 - 40 MG/H

REACTIONS (2)
  - DRUG EFFECT DECREASED [None]
  - DRUG INEFFECTIVE [None]
